FAERS Safety Report 7105311-7 (Version None)
Quarter: 2010Q4

REPORT INFORMATION
  Report Type: 
  Country: None (occurrence: None)
  Receive Date: 20101110
  Receipt Date: 20101104
  Transmission Date: 20110411
  Serious: Yes (Death)
  Sender: FDA-Public Use
  Company Number: 015859

PATIENT
  Age: 71 Year
  Sex: Female

DRUGS (4)
  1. VERAPAMIL HYDROCHLORIDE [Suspect]
     Indication: HYPERTENSION
     Dosage: 80 MG, THREE/DAY
  2. ATORVASTATIN (ATORVASTATIN) [Suspect]
     Dosage: 20 MG, ONCE/DAY
  3. INSULIN (INSULIN) [Concomitant]
  4. FAMOTIDINE [Concomitant]

REACTIONS (10)
  - ASTHENIA [None]
  - CHROMATURIA [None]
  - CONFUSIONAL STATE [None]
  - DRUG INTERACTION [None]
  - GENERAL PHYSICAL HEALTH DETERIORATION [None]
  - JAUNDICE [None]
  - MULTI-ORGAN FAILURE [None]
  - MYALGIA [None]
  - NAUSEA [None]
  - VOMITING [None]
